FAERS Safety Report 5367513-X (Version None)
Quarter: 2007Q2

REPORT INFORMATION
  Report Type: 
  Country: None (occurrence: None)
  Receive Date: 20070622
  Receipt Date: 20061128
  Transmission Date: 20071010
  Serious: No
  Sender: FDA-Public Use
  Company Number: US-ASTRAZENECA-2006UW20467

PATIENT

DRUGS (4)
  1. PULMICORT RESPULES [Suspect]
     Indication: ASTHMA
     Route: 055
  2. SINGULAIR [Concomitant]
     Route: 048
  3. CLARINEX [Concomitant]
  4. ALBUTEROL [Concomitant]

REACTIONS (1)
  - INTENTION TREMOR [None]
